FAERS Safety Report 4803101-9 (Version None)
Quarter: 2005Q4

REPORT INFORMATION
  Report Type: 
  Country: None (occurrence: None)
  Receive Date: 20051019
  Receipt Date: 20051011
  Transmission Date: 20060501
  Serious: Yes (Other)
  Sender: FDA-Public Use
  Company Number: 2005UW15215

PATIENT
  Age: 73 Year

DRUGS (1)
  1. ARIMIDEX [Suspect]
     Indication: BREAST CANCER IN SITU
     Route: 048

REACTIONS (3)
  - LYMPHOEDEMA [None]
  - VARICOSE VEIN [None]
  - VENOUS STASIS [None]
